FAERS Safety Report 6924996-9 (Version None)
Quarter: 2010Q3

REPORT INFORMATION
  Report Type: 
  Country: None (occurrence: None)
  Receive Date: 20100816
  Receipt Date: 20100806
  Transmission Date: 20110219
  Serious: Yes (Other)
  Sender: FDA-Public Use
  Company Number: CN-ASTRAZENECA-2010SE37072

PATIENT
  Age: 54 Year
  Sex: Male

DRUGS (4)
  1. PROPOFOL [Suspect]
     Indication: INDUCTION OF ANAESTHESIA
     Route: 042
  2. PROPOFOL [Suspect]
     Route: 042
  3. ATROPINE [Concomitant]
  4. PHENOBARBITAL [Concomitant]

REACTIONS (2)
  - HYPERSENSITIVITY [None]
  - VENTRICULAR EXTRASYSTOLES [None]
